FAERS Safety Report 16714017 (Version 1)
Quarter: 2019Q3

REPORT INFORMATION
  Report Type: Spontaneous
  Country: CN (occurrence: CN)
  Receive Date: 20190819
  Receipt Date: 20190819
  Transmission Date: 20191004
  Serious: Yes (Hospitalization, Disabling, Other)
  Sender: FDA-Public Use
  Company Number: CN-SA-2019SA221962

PATIENT
  Age: 43 Year
  Sex: Male
  Weight: 60 kg

DRUGS (7)
  1. ELOXATIN [Suspect]
     Active Substance: OXALIPLATIN
     Indication: T-CELL LYMPHOMA
     Dosage: 210.000 MG, 1X
     Route: 041
     Dates: start: 20190718, end: 20190718
  2. GLUCOSE [Concomitant]
     Active Substance: DEXTROSE
     Indication: T-CELL LYMPHOMA
     Dosage: 500 ML, 1X
     Route: 041
     Dates: start: 20190718, end: 20190718
  3. SODIUM CHLORIDE. [Concomitant]
     Active Substance: SODIUM CHLORIDE
     Indication: T-CELL LYMPHOMA
     Dosage: 100 ML, 1X
     Route: 041
     Dates: start: 20190718, end: 20190718
  4. TARGOCID [Concomitant]
     Active Substance: TEICOPLANIN
     Indication: LUNG INFECTION
     Dosage: 400.000 MG, 1X
     Dates: start: 20190710, end: 20190722
  5. MEPEM [MEROPENEM] [Concomitant]
     Active Substance: MEROPENEM
     Indication: LUNG INFECTION
     Dosage: 1 G, TID
     Dates: start: 20190710, end: 20190722
  6. GEMCITABINE HYDROCHLORIDE. [Suspect]
     Active Substance: GEMCITABINE HYDROCHLORIDE
     Indication: T-CELL LYMPHOMA
     Dosage: 1620 MG, 1X
     Route: 041
     Dates: start: 20190718, end: 20190718
  7. SODIUM CHLORIDE. [Suspect]
     Active Substance: SODIUM CHLORIDE
     Indication: LUNG INFECTION
     Dosage: 40 MG, 6ID
     Dates: start: 20190710, end: 20190722

REACTIONS (5)
  - Neutropenia [Recovering/Resolving]
  - Hyperpyrexia [Recovering/Resolving]
  - Chills [Recovering/Resolving]
  - White blood cell count decreased [Recovering/Resolving]
  - Acute kidney injury [Recovering/Resolving]

NARRATIVE: CASE EVENT DATE: 20190718
